FAERS Safety Report 22294216 (Version 1)
Quarter: 2023Q2

REPORT INFORMATION
  Report Type: Spontaneous
  Country: PT (occurrence: PT)
  Receive Date: 20230508
  Receipt Date: 20230508
  Transmission Date: 20230721
  Serious: Yes (Life-Threatening)
  Sender: FDA-Public Use
  Company Number: None

PATIENT
  Age: 64 Year
  Sex: Female

DRUGS (1)
  1. ADALIMUMAB [Suspect]
     Active Substance: ADALIMUMAB
     Indication: Rheumatoid arthritis
     Dosage: UNK,(SOLUTION FOR INJECTION)
     Route: 065
     Dates: start: 20180105, end: 20230330

REACTIONS (1)
  - Lung neoplasm [Recovering/Resolving]

NARRATIVE: CASE EVENT DATE: 20221201
